FAERS Safety Report 11937222 (Version 1)
Quarter: 2016Q1

REPORT INFORMATION
  Report Type: Spontaneous
  Country: CN (occurrence: CN)
  Receive Date: 20160121
  Receipt Date: 20160121
  Transmission Date: 20160526
  Serious: Yes (Other)
  Sender: FDA-Public Use
  Company Number: CN-PFIZER INC-2016034353

PATIENT
  Age: 76 Year
  Sex: Male
  Weight: 65 kg

DRUGS (2)
  1. LIPITOR [Suspect]
     Active Substance: ATORVASTATIN CALCIUM
     Indication: HYPERLIPIDAEMIA
     Dosage: 100 MG, 1X/DAY
     Route: 048
     Dates: start: 20140704, end: 20150122
  2. PLAVIX [Concomitant]
     Active Substance: CLOPIDOGREL BISULFATE
     Indication: PLATELET DISORDER
     Dosage: 75 MG, 1X/DAY
     Route: 048
     Dates: start: 20140704, end: 20150122

REACTIONS (2)
  - Abasia [Unknown]
  - Asthenia [Unknown]

NARRATIVE: CASE EVENT DATE: 20150122
